FAERS Safety Report 5696833-4 (Version None)
Quarter: 2008Q2

REPORT INFORMATION
  Report Type: 
  Country: None (occurrence: None)
  Receive Date: 20080408
  Receipt Date: 20080327
  Transmission Date: 20081010
  Serious: Yes (Other)
  Sender: FDA-Public Use
  Company Number: HQWYE683202AUG04

PATIENT
  Sex: Female

DRUGS (4)
  1. PREMARIN [Suspect]
  2. PREMPRO/PREMPHASE [Suspect]
  3. PREMPHASE 14/14 [Suspect]
  4. PROVERA [Suspect]

REACTIONS (1)
  - BREAST CANCER METASTATIC [None]
